FAERS Safety Report 4386154-4 (Version None)
Quarter: 2004Q2

REPORT INFORMATION
  Report Type: 
  Country: None (occurrence: None)
  Receive Date: 20040623
  Receipt Date: 20040614
  Transmission Date: 20050107
  Serious: Yes (Hospitalization)
  Sender: FDA-Public Use
  Company Number: A-CH2004-04330

PATIENT
  Age: 65 Year
  Sex: Female

DRUGS (9)
  1. TRACLEER [Suspect]
     Indication: SCLERODERMA
     Dosage: 62.5 MG, BID, ORAL  : 125 MG, BID ,ORAL
     Route: 048
     Dates: start: 20031010, end: 20031102
  2. TRACLEER [Suspect]
     Indication: SCLERODERMA
     Dosage: 62.5 MG, BID, ORAL  : 125 MG, BID ,ORAL
     Route: 048
     Dates: start: 20031103
  3. TORENTAL (PENTOXIFYLLINE) [Concomitant]
  4. ZESTRIL [Concomitant]
  5. OMEPRAZOLE [Concomitant]
  6. FONZYLANE (BUFLOMEDIL HYDROCHLORIDE) [Concomitant]
  7. DILTIAZEM HCL [Concomitant]
  8. QVAR(BECLOMETASONE DIPROPIONATE) [Concomitant]
  9. PIASCLEDINE (PERSEAE OLEUM, SOYA OIL) [Concomitant]

REACTIONS (5)
  - DRUG INEFFECTIVE [None]
  - DYSPNOEA EXERTIONAL [None]
  - NECROSIS [None]
  - OFF LABEL USE [None]
  - TOE AMPUTATION [None]
